FAERS Safety Report 18729123 (Version 1)
Quarter: 2021Q1

REPORT INFORMATION
  Report Type: Spontaneous
  Country: US (occurrence: US)
  Receive Date: 20210111
  Receipt Date: 20210111
  Transmission Date: 20210419
  Serious: Yes (Life-Threatening, Hospitalization)
  Sender: FDA-Public Use
  Company Number: None

PATIENT
  Age: 85 Year
  Sex: Male
  Weight: 84.5 kg

DRUGS (2)
  1. CASIRIVIMAB?IMDEVIMAB [Suspect]
     Active Substance: CASIRIVIMAB\IMDEVIMAB
     Indication: COVID-19
     Dosage: ?          OTHER FREQUENCY:ONCE;?
     Route: 041
     Dates: start: 20210108, end: 20210108
  2. REGENERON [Concomitant]
     Active Substance: UNSPECIFIED INGREDIENT
     Dates: start: 20210108, end: 20210108

REACTIONS (8)
  - Hypoxia [None]
  - Anaphylactic reaction [None]
  - Lung infiltration [None]
  - Dyspnoea [None]
  - Haemoptysis [None]
  - Cough [None]
  - Hypotension [None]
  - Distributive shock [None]

NARRATIVE: CASE EVENT DATE: 20210108
